FAERS Safety Report 7262438-7 (Version None)
Quarter: 2011Q1

REPORT INFORMATION
  Report Type: 
  Country: None (occurrence: None)
  Receive Date: 20110130
  Receipt Date: 20101115
  Transmission Date: 20110831
  Serious: No
  Sender: FDA-Public Use
  Company Number: US-ABBOTT-10P-163-0686275-00

PATIENT
  Age: 58 Year
  Sex: Female
  Weight: 113.5 kg

DRUGS (7)
  1. SIMVASTATIN [Concomitant]
     Indication: BLOOD CHOLESTEROL INCREASED
  2. ALENDRONATE SODIUM [Concomitant]
     Indication: OSTEOPOROSIS PROPHYLAXIS
  3. PRILOSEC [Concomitant]
     Indication: REFLUX GASTRITIS
  4. HUMIRA [Suspect]
     Indication: PSORIASIS
     Dates: start: 20100708
  5. ASPIRIN [Concomitant]
     Indication: PRODUCT USED FOR UNKNOWN INDICATION
  6. CALTRATE [Concomitant]
     Indication: PRODUCT USED FOR UNKNOWN INDICATION
     Dosage: DAILY
  7. CYCOBENZAPRINE HCL [Concomitant]
     Indication: MUSCLE RELAXANT THERAPY

REACTIONS (5)
  - ABDOMINAL PAIN [None]
  - CONTUSION [None]
  - DIVERTICULITIS [None]
  - TYPE 2 DIABETES MELLITUS [None]
  - GASTROINTESTINAL PAIN [None]
